FAERS Safety Report 11694577 (Version 2)
Quarter: 2015Q4

REPORT INFORMATION
  Report Type: Spontaneous
  Country: US (occurrence: US)
  Receive Date: 20151103
  Receipt Date: 20151105
  Transmission Date: 20160304
  Serious: No
  Sender: FDA-Public Use
  Company Number: US-BAYER-2015-454892

PATIENT
  Age: 27 Year
  Sex: Female
  Weight: 136.5 kg

DRUGS (1)
  1. CLARITIN-D 24 HOUR [Suspect]
     Active Substance: LORATADINE\PSEUDOEPHEDRINE SULFATE
     Indication: COUGH
     Dosage: 1 DF, QD
     Route: 048

REACTIONS (3)
  - Medication residue present [Unknown]
  - Product use issue [None]
  - Depression [Unknown]
